FAERS Safety Report 7818105-1 (Version None)
Quarter: 2011Q4

REPORT INFORMATION
  Report Type: 
  Country: None (occurrence: None)
  Receive Date: 20111017
  Receipt Date: 20111007
  Transmission Date: 20120403
  Serious: Yes (Other)
  Sender: FDA-Public Use
  Company Number: US-CELGENEUS-163-21880-11100931

PATIENT
  Sex: Male

DRUGS (1)
  1. REVLIMID [Suspect]
     Indication: MULTIPLE MYELOMA
     Dosage: 15 MILLIGRAM
     Route: 048
     Dates: start: 20110811

REACTIONS (4)
  - GALLBLADDER DISORDER [None]
  - PROCEDURAL COMPLICATION [None]
  - SEDATIVE THERAPY [None]
  - CARDIAC ARREST [None]
